FAERS Safety Report 4838100-4 (Version None)
Quarter: 2005Q4

REPORT INFORMATION
  Report Type: 
  Country: None (occurrence: None)
  Receive Date: 20051123
  Receipt Date: 20051123
  Transmission Date: 20060501
  Serious: Yes (Hospitalization)
  Sender: FDA-Public Use
  Company Number: None

PATIENT
  Sex: Male

DRUGS (2)
  1. HYDRALAZINE 10MG QID [Suspect]
     Indication: CARDIAC FAILURE CONGESTIVE
     Dosage: PO - 10 MG QID
     Route: 048
  2. IMDUR [Suspect]
     Dosage: PO  60 MG Q DAY
     Route: 048

REACTIONS (4)
  - BLOOD PRESSURE DIASTOLIC DECREASED [None]
  - DIZZINESS [None]
  - FALL [None]
  - GAIT DISTURBANCE [None]
